FAERS Safety Report 16702029 (Version 5)
Quarter: 2019Q3

REPORT INFORMATION
  Report Type: Spontaneous
  Country: US (occurrence: US)
  Receive Date: 20190814
  Receipt Date: 20190926
  Transmission Date: 20191004
  Serious: No
  Sender: FDA-Public Use
  Company Number: PHEH2019US033711

PATIENT
  Sex: Female

DRUGS (1)
  1. CROMOLYN SODIUM. [Suspect]
     Active Substance: CROMOLYN SODIUM
     Indication: PRODUCT USED FOR UNKNOWN INDICATION
     Dosage: UNK, QID
     Route: 047

REACTIONS (4)
  - Product quality issue [Unknown]
  - Product contamination [Unknown]
  - Foreign body sensation in eyes [Unknown]
  - Product container issue [Unknown]
